FAERS Safety Report 9342754 (Version 2)
Quarter: 2013Q2

REPORT INFORMATION
  Report Type: Spontaneous
  Country: MX (occurrence: None)
  Receive Date: 20130529
  Receipt Date: 20130621
  Transmission Date: 20140414
  Serious: Yes (Death)
  Sender: FDA-Public Use
  Company Number: ENTC2010-0339

PATIENT
  Age: 88 Year
  Sex: Male

DRUGS (6)
  1. STALEVO (LEVODOPA, CARBIDOPA, ENTACAPONE) [Suspect]
     Indication: PARKINSON^S DISEASE
     Route: 048
     Dates: start: 20090619
  2. DIOVAN (VALSARTAN) [Suspect]
  3. EXFORGE [Suspect]
  4. CO-DIOVAN [Suspect]
  5. EXELON (RIVASTIGMINE) [Suspect]
  6. RENACEN [Concomitant]

REACTIONS (2)
  - Cardiac arrest [None]
  - Dizziness [None]
